FAERS Safety Report 8322940-3 (Version None)
Quarter: 2012Q2

REPORT INFORMATION
  Report Type: 
  Country: None (occurrence: None)
  Receive Date: 20120430
  Receipt Date: 20120418
  Transmission Date: 20120825
  Serious: Yes (Hospitalization)
  Sender: FDA-Public Use
  Company Number: US-ACTELION-A-US2011-45425

PATIENT

DRUGS (11)
  1. EPOPROSTENOL SODIUM [Suspect]
     Indication: PULMONARY ARTERIAL HYPERTENSION
     Dosage: 71 UG/KG, PER MIN
     Route: 042
     Dates: start: 20101130
  2. DIURETICS [Concomitant]
  3. ADVAIR DISKUS 100/50 [Concomitant]
  4. OXYGEN [Concomitant]
  5. SPIRONOLACTONE [Concomitant]
  6. TRACLEER [Suspect]
     Indication: PULMONARY ARTERIAL HYPERTENSION
     Dosage: UNK
     Route: 048
     Dates: start: 20090813, end: 20120301
  7. EPOPROSTENOL SODIUM [Suspect]
     Dosage: 58 NG/KG, PER MIN
     Route: 042
     Dates: start: 20110101
  8. EPOPROSTENOL SODIUM [Suspect]
     Dosage: 61 NG/KG, PER MIN
     Route: 042
     Dates: start: 20101030
  9. COUMADIN [Concomitant]
  10. TADALAFIL [Concomitant]
  11. FUROSEMIDE [Concomitant]

REACTIONS (7)
  - OEDEMA PERIPHERAL [None]
  - NASOPHARYNGITIS [None]
  - FLUID RETENTION [None]
  - DYSPNOEA [None]
  - FLUID OVERLOAD [None]
  - RIGHT VENTRICULAR FAILURE [None]
  - EPISTAXIS [None]
